FAERS Safety Report 7216287-6 (Version None)
Quarter: 2011Q1

REPORT INFORMATION
  Report Type: 
  Country: None (occurrence: None)
  Receive Date: 20110107
  Receipt Date: 20110103
  Transmission Date: 20110831
  Serious: Yes (Other)
  Sender: FDA-Public Use
  Company Number: US-JNJFOC-20100905767

PATIENT
  Sex: Female

DRUGS (1)
  1. MODICON [Suspect]
     Indication: ILL-DEFINED DISORDER
     Route: 065

REACTIONS (4)
  - PANIC ATTACK [None]
  - FEELING ABNORMAL [None]
  - MOOD SWINGS [None]
  - MENORRHAGIA [None]
